FAERS Safety Report 9477800 (Version 2)
Quarter: 2013Q3

REPORT INFORMATION
  Report Type: Report from Study
  Country: FR (occurrence: FR)
  Receive Date: 20130827
  Receipt Date: 20130827
  Transmission Date: 20140515
  Serious: Yes (Hospitalization)
  Sender: FDA-Public Use
  Company Number: FR-BRISTOL-MYERS SQUIBB COMPANY-16499998

PATIENT
  Age: 74 Year
  Sex: Female

DRUGS (3)
  1. WARFARIN SODIUM [Suspect]
     Indication: EMBOLISM
     Route: 048
     Dates: start: 20120301
  2. ENOXAPARIN SODIUM [Suspect]
     Indication: EMBOLISM
     Route: 058
     Dates: start: 20120301, end: 20120305
  3. PLACEBO [Suspect]
     Indication: EMBOLISM
     Dosage: APIXA AND WARAFRIN ARM PO?ENOXA ARM SC FROM 1MAR12-5MAR12
     Dates: start: 20120301

REACTIONS (2)
  - Renal colic [Recovered/Resolved]
  - Gastroenteritis [Recovered/Resolved]
